FAERS Safety Report 7177944-3 (Version None)
Quarter: 2010Q4

REPORT INFORMATION
  Report Type: 
  Country: None (occurrence: None)
  Receive Date: 20101220
  Receipt Date: 20101212
  Transmission Date: 20110411
  Serious: Yes (Hospitalization)
  Sender: FDA-Public Use
  Company Number: IT-ABBOTT-10P-083-0692451-00

PATIENT
  Sex: Female

DRUGS (1)
  1. ENANTONE 3.75 MG [Suspect]
     Indication: IN VITRO FERTILISATION
     Route: 065

REACTIONS (1)
  - OVARIAN HYPERSTIMULATION SYNDROME [None]
